FAERS Safety Report 22077366 (Version 2)
Quarter: 2023Q1

REPORT INFORMATION
  Report Type: Spontaneous
  Country: SA (occurrence: SA)
  Receive Date: 20230309
  Receipt Date: 20230327
  Transmission Date: 20230418
  Serious: Yes (Hospitalization, Other)
  Sender: FDA-Public Use
  Company Number: SA-002147023-NVSC2023SA050835

PATIENT
  Age: 1 Year
  Sex: Female

DRUGS (2)
  1. ONASEMNOGENE ABEPARVOVEC [Suspect]
     Active Substance: ONASEMNOGENE ABEPARVOVEC
     Indication: Spinal muscular atrophy
     Dosage: UNK, ONCE/SINGLE (ADMINISTRATED AS ONE TIME, SINGLE IV INFUSION)
     Route: 042
     Dates: start: 20210809, end: 20210809
  2. CHLORAL HYDRATE [Concomitant]
     Active Substance: CHLORAL HYDRATE
     Indication: Product used for unknown indication
     Dosage: UNK
     Route: 065

REACTIONS (9)
  - Pneumonia [Recovered/Resolved]
  - Failure to thrive [Recovered/Resolved]
  - Feeding disorder [Recovered/Resolved]
  - Cough [Unknown]
  - Pyrexia [Unknown]
  - Rhinorrhoea [Unknown]
  - Decreased activity [Unknown]
  - Pneumothorax [Unknown]
  - Atelectasis [Unknown]

NARRATIVE: CASE EVENT DATE: 20230209
